FAERS Safety Report 19443543 (Version 5)
Quarter: 2021Q3

REPORT INFORMATION
  Report Type: Spontaneous
  Country: JP (occurrence: JP)
  Receive Date: 20210621
  Receipt Date: 20210727
  Transmission Date: 20211014
  Serious: Yes (Life-Threatening, Hospitalization)
  Sender: FDA-Public Use
  Company Number: JP-BIOCRYST-2021BCR00176

PATIENT
  Age: 12 Year
  Sex: Female
  Weight: 43 kg

DRUGS (9)
  1. BERINERT P [Concomitant]
     Active Substance: HUMAN C1-ESTERASE INHIBITOR
     Indication: HEREDITARY ANGIOEDEMA
     Dosage: 1500 IU, 1X/DAY
     Route: 042
     Dates: start: 20210404
  2. ORLADEYO [Suspect]
     Active Substance: BEROTRALSTAT HYDROCHLORIDE
     Indication: HEREDITARY ANGIOEDEMA
     Dosage: 150 MG, 1X/DAY
     Route: 048
     Dates: start: 20210506, end: 20210521
  3. BUSCOPAN [Concomitant]
     Active Substance: BUTYLSCOPOLAMINE BROMIDE
     Indication: ABDOMINAL PAIN
     Dosage: 20 MG, 1X/DAY
     Route: 042
     Dates: start: 20210601, end: 20210601
  4. ORLADEYO [Suspect]
     Active Substance: BEROTRALSTAT HYDROCHLORIDE
     Dosage: 150 MG, 1X/DAY
     Route: 048
     Dates: start: 20210525, end: 20210602
  5. TERPERAN [Concomitant]
     Active Substance: METOCLOPRAMIDE HYDROCHLORIDE
     Indication: NAUSEA
     Dosage: 10 MG, 3X/DAY
     Route: 048
     Dates: start: 20210524, end: 20210602
  6. BUSCOPAN [Concomitant]
     Active Substance: BUTYLSCOPOLAMINE BROMIDE
     Indication: ABDOMINAL PAIN
     Dosage: 10 MG, 3X/DAY
     Route: 048
     Dates: start: 20210526, end: 20210602
  7. PRIMPERAN [Concomitant]
     Active Substance: METOCLOPRAMIDE HYDROCHLORIDE
     Indication: NAUSEA
     Dosage: 10 MG, 1X/DAY
     Route: 042
     Dates: start: 20210602, end: 20210602
  8. FIRAZYR [Concomitant]
     Active Substance: ICATIBANT ACETATE
     Indication: HEREDITARY ANGIOEDEMA
     Dosage: 20 MG, 1X/DAY
     Route: 042
     Dates: start: 20210404
  9. NAUZELIN [Concomitant]
     Active Substance: DOMPERIDONE
     Indication: NAUSEA
     Dosage: 10 MG, 3X/DAY
     Route: 048
     Dates: start: 20210519, end: 20210602

REACTIONS (14)
  - Amenorrhoea [Not Recovered/Not Resolved]
  - Pharyngeal oedema [Recovering/Resolving]
  - Abdominal distension [Recovering/Resolving]
  - Nausea [Recovering/Resolving]
  - Headache [Recovering/Resolving]
  - Vertigo [Recovering/Resolving]
  - Ear discomfort [Recovering/Resolving]
  - Abdominal pain [Recovered/Resolved]
  - Dyspnoea [Recovering/Resolving]
  - Vomiting [Recovering/Resolving]
  - Drug eruption [Recovering/Resolving]
  - Throat tightness [Recovered/Resolved]
  - Diarrhoea [Recovering/Resolving]
  - Oropharyngeal pain [Recovered/Resolved]

NARRATIVE: CASE EVENT DATE: 20210507
